FAERS Safety Report 8822286 (Version 1)
Quarter: 2012Q4

REPORT INFORMATION
  Report Type: 
  Country: MX (occurrence: MX)
  Receive Date: 20121003
  Receipt Date: 20121003
  Transmission Date: 20130627
  Serious: Yes (Hospitalization, Other)
  Sender: FDA-Public Use
  Company Number: PHHY2012MX085293

PATIENT
  Age: 58 Year
  Sex: Male

DRUGS (3)
  1. ONBREZ [Suspect]
     Dosage: 1 DF, Daily
     Dates: start: 201112, end: 201209
  2. GALVUS MET [Suspect]
     Indication: DIABETES MELLITUS
     Dosage: 2 DF (500/50 mg), Daily
     Dates: start: 201112, end: 20120921
  3. EXFORGE [Suspect]
     Dosage: 1 DF, Daily
     Dates: start: 201112, end: 201209

REACTIONS (3)
  - Pancreatitis [Not Recovered/Not Resolved]
  - Blood pressure increased [Not Recovered/Not Resolved]
  - Myocardial infarction [Not Recovered/Not Resolved]
